FAERS Safety Report 15570724 (Version 1)
Quarter: 2018Q4

REPORT INFORMATION
  Report Type: Spontaneous
  Country: JP (occurrence: JP)
  Receive Date: 20181031
  Receipt Date: 20181031
  Transmission Date: 20190205
  Serious: Yes (Other)
  Sender: FDA-Public Use
  Company Number: PHJP2018JP014224

PATIENT
  Age: 52 Year
  Sex: Male

DRUGS (5)
  1. ETODOLAC. [Concomitant]
     Active Substance: ETODOLAC
     Indication: MYXOFIBROSARCOMA
     Dosage: UNK
     Route: 048
  2. CARBAMAZEPINE. [Suspect]
     Active Substance: CARBAMAZEPINE
     Indication: MYXOFIBROSARCOMA
     Dosage: UNK
     Route: 048
  3. REBAMIPIDE [Suspect]
     Active Substance: REBAMIPIDE
     Indication: MYXOFIBROSARCOMA
     Dosage: UNK
     Route: 065
  4. LANSOPRAZOLE. [Concomitant]
     Active Substance: LANSOPRAZOLE
     Indication: MYXOFIBROSARCOMA
     Route: 048
  5. NIVOLUMAB [Suspect]
     Active Substance: NIVOLUMAB
     Indication: MYXOFIBROSARCOMA
     Dosage: UNK, 6 COURSES
     Route: 048

REACTIONS (9)
  - Drug reaction with eosinophilia and systemic symptoms [Unknown]
  - Cytopenia [Unknown]
  - Liver disorder [Unknown]
  - Swelling face [Unknown]
  - Erythema multiforme [Unknown]
  - Blood count abnormal [Unknown]
  - Product use in unapproved indication [Unknown]
  - Hyperthermia [Unknown]
  - Rash [Unknown]
